FAERS Safety Report 10687841 (Version 1)
Quarter: 2014Q4

REPORT INFORMATION
  Report Type: Spontaneous
  Country: US (occurrence: None)
  Receive Date: 20141231
  Receipt Date: 20141231
  Transmission Date: 20150529
  Serious: No
  Sender: FDA-Public Use
  Company Number: None

PATIENT
  Age: 69 Year
  Sex: Male
  Weight: 119 kg

DRUGS (1)
  1. BENZOCAINE. [Suspect]
     Active Substance: BENZOCAINE
     Indication: ECHOCARDIOGRAM
     Dates: start: 20141215, end: 20141215

REACTIONS (2)
  - Methaemoglobinaemia [None]
  - Oxygen saturation decreased [None]

NARRATIVE: CASE EVENT DATE: 20141215
